FAERS Safety Report 5990449-8 (Version None)
Quarter: 2008Q4

REPORT INFORMATION
  Report Type: 
  Country: None (occurrence: None)
  Receive Date: 20081211
  Receipt Date: 20081201
  Transmission Date: 20090506
  Serious: Yes (Hospitalization, Other)
  Sender: FDA-Public Use
  Company Number: CN-PFIZER INC-2008101293

PATIENT

DRUGS (2)
  1. NORVASC [Suspect]
     Indication: HYPERTENSION
     Route: 048
  2. MONOPRIL [Concomitant]
     Route: 048

REACTIONS (2)
  - CEREBRAL INFARCTION [None]
  - RASH GENERALISED [None]
